FAERS Safety Report 15322207 (Version 2)
Quarter: 2018Q3

REPORT INFORMATION
  Report Type: Spontaneous
  Country: JP (occurrence: JP)
  Receive Date: 20180827
  Receipt Date: 20180828
  Transmission Date: 20181010
  Serious: Yes (Other)
  Sender: FDA-Public Use
  Company Number: JP-PFIZER INC-2018336923

PATIENT
  Sex: Male

DRUGS (3)
  1. LOXOPROFEN SODIUM HYDRATE [Concomitant]
     Active Substance: LOXOPROFEN SODIUM DIHYDRATE
     Dosage: UNK
  2. ESTRACYT [Suspect]
     Active Substance: ESTRAMUSTINE PHOSPHATE SODIUM
     Dosage: UNK
     Route: 048
  3. ZOLADEX [Suspect]
     Active Substance: GOSERELIN ACETATE
     Dosage: UNK
     Route: 023

REACTIONS (1)
  - Lung disorder [Unknown]
